FAERS Safety Report 17444279 (Version 1)
Quarter: 2020Q1

REPORT INFORMATION
  Report Type: Spontaneous
  Country: US (occurrence: US)
  Receive Date: 20200221
  Receipt Date: 20200221
  Transmission Date: 20200409
  Serious: Yes (Hospitalization)
  Sender: FDA-Public Use
  Company Number: None

PATIENT
  Age: 3 Month
  Sex: Male
  Weight: 6.75 kg

DRUGS (1)
  1. EUCERIN ECZEMA RELIEF BODY [Suspect]
     Active Substance: OATMEAL
     Indication: DRY SKIN
     Route: 061
     Dates: start: 20200105, end: 20200221

REACTIONS (3)
  - Condition aggravated [None]
  - Skin haemorrhage [None]
  - Skin weeping [None]

NARRATIVE: CASE EVENT DATE: 20200221
